FAERS Safety Report 4724982-3 (Version None)
Quarter: 2005Q3

REPORT INFORMATION
  Report Type: 
  Country: None (occurrence: None)
  Receive Date: 20050722
  Receipt Date: 20050714
  Transmission Date: 20060218
  Serious: Yes (Congenital Anomaly)
  Sender: FDA-Public Use
  Company Number: 2005FR-00136

PATIENT

DRUGS (3)
  1. FLUOXETINE [Suspect]
     Dosage: 40MG, TRANPLACENTAL
     Route: 064
  2. PROPRANOLOL [Concomitant]
  3. DIAZEPAM [Concomitant]

REACTIONS (4)
  - DRUG EXPOSURE DURING PREGNANCY [None]
  - FOETAL DISORDER [None]
  - GASTROSCHISIS [None]
  - UNINTENDED PREGNANCY [None]
